FAERS Safety Report 4345879-7 (Version None)
Quarter: 2004Q2

REPORT INFORMATION
  Report Type: 
  Country: None (occurrence: None)
  Receive Date: 20040426
  Receipt Date: 20040129
  Transmission Date: 20050107
  Serious: No
  Sender: FDA-Public Use
  Company Number: US-BRISTOL-MYERS SQUIBB COMPANY-12491270

PATIENT
  Age: 72 Year
  Sex: Female
  Weight: 69 kg

DRUGS (1)
  1. CYTOXAN [Suspect]
     Indication: INTERSTITIAL LUNG DISEASE
     Dosage: THERAPY FROM:  ^SUMMER OF 2003^
     Route: 048

REACTIONS (4)
  - AGEUSIA [None]
  - ANOSMIA [None]
  - DRUG INEFFECTIVE [None]
  - DYSGEUSIA [None]
